FAERS Safety Report 20103565 (Version 1)
Quarter: 2021Q4

REPORT INFORMATION
  Report Type: Spontaneous
  Country: CA (occurrence: CA)
  Receive Date: 20211123
  Receipt Date: 20211123
  Transmission Date: 20220303
  Serious: Yes (Hospitalization)
  Sender: FDA-Public Use
  Company Number: CA-TEVA-2021-CA-1979576

PATIENT
  Age: 63 Year
  Sex: Male

DRUGS (3)
  1. KETOCONAZOLE [Suspect]
     Active Substance: KETOCONAZOLE
     Indication: Product used for unknown indication
     Route: 065
  2. SIGNIFOR [Suspect]
     Active Substance: PASIREOTIDE DIASPARTATE
     Indication: Pituitary-dependent Cushing^s syndrome
     Dosage: .6 MICROGRAM DAILY;
     Route: 058
  3. GLICLAZIDE [Concomitant]
     Active Substance: GLICLAZIDE

REACTIONS (24)
  - Asthenia [Unknown]
  - Blood glucose increased [Unknown]
  - Blood pressure increased [Unknown]
  - Blood pressure increased [Unknown]
  - Cortisol increased [Unknown]
  - Diarrhoea [Unknown]
  - Dizziness [Unknown]
  - Headache [Unknown]
  - Heart rate increased [Unknown]
  - Hypoglycaemia [Unknown]
  - Hypotension [Unknown]
  - Hypothyroidism [Unknown]
  - Malaise [Unknown]
  - Malignant neoplasm progression [Unknown]
  - Nausea [Unknown]
  - Neoplasm progression [Unknown]
  - Nephrolithiasis [Unknown]
  - Pituitary tumour [Unknown]
  - Pneumonia [Unknown]
  - Thyroid disorder [Unknown]
  - Urinary tract infection [Unknown]
  - Incorrect dose administered [Unknown]
  - Wrong technique in product usage process [Unknown]
  - Drug intolerance [Unknown]
